FAERS Safety Report 20924161 (Version 1)
Quarter: 2022Q2

REPORT INFORMATION
  Report Type: Spontaneous
  Country: AU (occurrence: AU)
  Receive Date: 20220607
  Receipt Date: 20220607
  Transmission Date: 20220721
  Serious: Yes (Hospitalization)
  Sender: FDA-Public Use
  Company Number: AU-BAYER-2022A079633

PATIENT
  Age: 36 Year
  Sex: Female

DRUGS (1)
  1. MIRENA [Suspect]
     Active Substance: LEVONORGESTREL
     Indication: Heavy menstrual bleeding
     Dosage: 20?G/DAY
     Route: 015
     Dates: start: 20210204, end: 20220426

REACTIONS (9)
  - Anxiety [Not Recovered/Not Resolved]
  - Alopecia [Recovered/Resolved with Sequelae]
  - Panic attack [Not Recovered/Not Resolved]
  - Dizziness [Not Recovered/Not Resolved]
  - Intrusive thoughts [Recovering/Resolving]
  - Palpitations [Not Recovered/Not Resolved]
  - Vertigo [Recovered/Resolved with Sequelae]
  - Fatigue [None]
  - Dermatitis [None]
